FAERS Safety Report 7597241-1 (Version None)
Quarter: 2011Q3

REPORT INFORMATION
  Report Type: 
  Country: None (occurrence: None)
  Receive Date: 20110708
  Receipt Date: 20101201
  Transmission Date: 20111222
  Serious: No
  Sender: FDA-Public Use
  Company Number: US-GLAXOSMITHKLINE-A0897223A

PATIENT
  Age: 66 Year
  Sex: Male
  Weight: 76.4 kg

DRUGS (8)
  1. FLOVENT [Suspect]
     Indication: DYSPNOEA
     Dosage: 110MCG AS REQUIRED
     Route: 055
  2. NOVOLOG [Concomitant]
  3. COMBIVENT [Concomitant]
  4. FOLIC ACID [Concomitant]
  5. PRILOSEC [Concomitant]
  6. ACTOS [Concomitant]
  7. OXYCONTIN [Concomitant]
  8. INSULIN [Concomitant]

REACTIONS (2)
  - BLOOD GLUCOSE INCREASED [None]
  - PRODUCT QUALITY ISSUE [None]
